FAERS Safety Report 4397017-2 (Version None)
Quarter: 2004Q3

REPORT INFORMATION
  Report Type: 
  Country: None (occurrence: None)
  Receive Date: 20040708
  Receipt Date: 20040628
  Transmission Date: 20050211
  Serious: Yes (Disabling)
  Sender: FDA-Public Use
  Company Number: 2004221587GB

PATIENT
  Age: 54 Year
  Sex: Female

DRUGS (2)
  1. XALATAN [Suspect]
     Indication: GLAUCOMA
     Dosage: OPHTHALMIC
     Route: 047
     Dates: start: 20040429, end: 20040513
  2. VEXOL (RIMEXOLONE) [Concomitant]

REACTIONS (2)
  - ASTHMA [None]
  - EXERCISE TOLERANCE DECREASED [None]
